FAERS Safety Report 26042006 (Version 1)
Quarter: 2025Q4

REPORT INFORMATION
  Report Type: Spontaneous
  Country: US (occurrence: US)
  Receive Date: 20251113
  Receipt Date: 20251113
  Transmission Date: 20260118
  Serious: No
  Sender: MYLAN
  Company Number: US-MYLANLABS-2025M1094643

PATIENT
  Sex: Female
  Weight: 61.69 kg

DRUGS (3)
  1. LYRICA [Suspect]
     Active Substance: PREGABALIN
     Indication: Neuropathy peripheral
     Dosage: 150 MILLIGRAM, TID (THREE TIMES DAILY)
  2. LYRICA [Suspect]
     Active Substance: PREGABALIN
     Dosage: 100 MILLIGRAM, TID (THREE TIMES DAILY)
  3. LYRICA [Suspect]
     Active Substance: PREGABALIN
     Dosage: 100 MILLIGRAM, BID (TWICE DAILY)

REACTIONS (4)
  - Renal disorder [Not Recovered/Not Resolved]
  - Weight increased [Unknown]
  - Therapeutic response unexpected [Unknown]
  - Off label use [Unknown]
